FAERS Safety Report 7071393-4 (Version None)
Quarter: 2010Q4

REPORT INFORMATION
  Report Type: 
  Country: None (occurrence: None)
  Receive Date: 20101029
  Receipt Date: 20091124
  Transmission Date: 20110411
  Serious: No
  Sender: FDA-Public Use
  Company Number: A0740282A

PATIENT
  Age: 52 Year
  Sex: Male

DRUGS (5)
  1. ADVAIR DISKUS 100/50 [Suspect]
     Route: 055
     Dates: start: 20080715
  2. SINGULAIR [Concomitant]
  3. VITAMINS [Concomitant]
  4. CLARITIN [Concomitant]
  5. ALLERGY SHOTS [Concomitant]

REACTIONS (2)
  - DYSPHONIA [None]
  - PRODUCT QUALITY ISSUE [None]
